FAERS Safety Report 26021680 (Version 1)
Quarter: 2025Q4

REPORT INFORMATION
  Report Type: Spontaneous
  Country: US (occurrence: None)
  Receive Date: 20251107
  Receipt Date: 20251107
  Transmission Date: 20260117
  Serious: No
  Sender: FDA-CTU
  Company Number: None

PATIENT
  Age: 69 Year
  Sex: Male

DRUGS (1)
  1. OJJAARA [Suspect]
     Active Substance: MOMELOTINIB DIHYDROCHLORIDE MONOHYDRATE
     Indication: Multisystem inflammatory syndrome
     Dosage: 200 MG ?
     Route: 048

REACTIONS (1)
  - Pyrexia [None]

NARRATIVE: CASE EVENT DATE: 20251106
